FAERS Safety Report 21561688 (Version 4)
Quarter: 2023Q1

REPORT INFORMATION
  Report Type: Report from Study
  Country: CA (occurrence: CA)
  Receive Date: 20221107
  Receipt Date: 20230206
  Transmission Date: 20230418
  Serious: Yes (Other)
  Sender: FDA-Public Use
  Company Number: CA-JNJFOC-20220623221

PATIENT
  Age: 52 Year
  Sex: Female

DRUGS (1)
  1. SIMPONI [Suspect]
     Active Substance: GOLIMUMAB
     Indication: Ankylosing spondylitis
     Route: 058
     Dates: start: 20220608

REACTIONS (14)
  - Ankylosing spondylitis [Not Recovered/Not Resolved]
  - Hot flush [Recovered/Resolved]
  - Paraesthesia [Recovered/Resolved]
  - Menopausal symptoms [Unknown]
  - Poor quality sleep [Unknown]
  - Injection site bruising [Recovering/Resolving]
  - Flushing [Unknown]
  - Malaise [Unknown]
  - Otitis media [Unknown]
  - Sinus congestion [Unknown]
  - Seasonal allergy [Unknown]
  - Ear infection [Recovering/Resolving]
  - Therapeutic response decreased [Unknown]
  - Lower respiratory tract infection [Unknown]

NARRATIVE: CASE EVENT DATE: 20220608
